FAERS Safety Report 20371550 (Version 1)
Quarter: 2022Q1

REPORT INFORMATION
  Report Type: Spontaneous
  Country: US (occurrence: None)
  Receive Date: 20220122
  Receipt Date: 20220122
  Transmission Date: 20220423
  Serious: Yes (Death)
  Sender: FDA-Public Use
  Company Number: None

PATIENT
  Sex: Male
  Weight: 101.6 kg

DRUGS (3)
  1. DEVICE [Suspect]
     Active Substance: DEVICE
  2. COUMADIN [Suspect]
     Active Substance: WARFARIN SODIUM
  3. COVID-19 VACCINE NOS [Suspect]
     Active Substance: COVID-19 VACCINE NOS

REACTIONS (3)
  - Drug level decreased [None]
  - Thrombosis [None]
  - Vaccination complication [None]
